FAERS Safety Report 14615896 (Version 3)
Quarter: 2022Q1

REPORT INFORMATION
  Report Type: Report from Study
  Country: CN (occurrence: None)
  Receive Date: 20180309
  Receipt Date: 20220320
  Transmission Date: 20220423
  Serious: Yes (Hospitalization)
  Sender: FDA-Public Use
  Company Number: CN-ROCHE-1892671

PATIENT
  Age: 61 Year
  Sex: Female
  Weight: 55 kg

DRUGS (33)
  1. PLACEBO [Suspect]
     Active Substance: UNSPECIFIED INGREDIENT
     Indication: HER2 positive breast cancer
     Route: 042
     Dates: start: 20161111
  2. PLACEBO [Suspect]
     Active Substance: UNSPECIFIED INGREDIENT
     Dosage: DATE OF MOST RECENT DOSE OF PERTUZUMAB PRIOR TO AE ONSET: 13/JAN/2017
     Route: 042
  3. TRASTUZUMAB [Suspect]
     Active Substance: TRASTUZUMAB
     Indication: HER2 positive breast cancer
     Dosage: LOADING DOSE.
     Route: 042
     Dates: start: 20161111
  4. TRASTUZUMAB [Suspect]
     Active Substance: TRASTUZUMAB
     Dosage: MAINTENANCE DOSE. DATE OF MOST RECENT DOSE (340 MG) OF TRASTUZUMAB PRIOR TO AE ONSET: 13/JAN/2017
     Route: 042
  5. DOCETAXEL [Suspect]
     Active Substance: DOCETAXEL
     Indication: HER2 positive breast cancer
     Dosage: DATE OF MOST RECENT DOSE (120 MG) OF DOCETAXEL PRIOR TO AE ONSET: 13/JAN/2017
     Route: 042
     Dates: start: 20161111
  6. BUDESONIDE [Concomitant]
     Active Substance: BUDESONIDE
     Indication: Bronchiectasis
     Dates: start: 20170211, end: 20170213
  7. DEXAMETHASONE ACETATE [Concomitant]
     Active Substance: DEXAMETHASONE ACETATE
     Dates: start: 20170113, end: 20170113
  8. DEXAMETHASONE ACETATE [Concomitant]
     Active Substance: DEXAMETHASONE ACETATE
     Dosage: PRECAUTIONARY ALLERGY
     Dates: start: 20170204, end: 20170204
  9. FAMOTIDINE [Concomitant]
     Active Substance: FAMOTIDINE
     Dates: start: 20170113, end: 20170113
  10. FAMOTIDINE [Concomitant]
     Active Substance: FAMOTIDINE
     Dosage: PROTECT STOMACH
     Dates: start: 20170204, end: 20170204
  11. DEXAMETHASONE SODIUM PHOSPHATE [Concomitant]
     Active Substance: DEXAMETHASONE SODIUM PHOSPHATE
     Dates: start: 20170113, end: 20170113
  12. DEXAMETHASONE SODIUM PHOSPHATE [Concomitant]
     Active Substance: DEXAMETHASONE SODIUM PHOSPHATE
     Dosage: PRECAUTIONARY ALLERGY
     Dates: start: 20170204, end: 20170204
  13. PANTOPRAZOLE [Concomitant]
     Active Substance: PANTOPRAZOLE
     Dates: start: 20170113, end: 20170113
  14. PALONOSETRON [Concomitant]
     Active Substance: PALONOSETRON
     Indication: Nausea
     Dates: start: 20170113, end: 20170113
  15. PALONOSETRON [Concomitant]
     Active Substance: PALONOSETRON
     Dates: start: 20170216, end: 20170216
  16. PALONOSETRON [Concomitant]
     Active Substance: PALONOSETRON
     Dates: start: 20170204, end: 20170204
  17. HEPARIN SODIUM [Concomitant]
     Active Substance: HEPARIN SODIUM
     Dosage: ANTICOAGULANT
     Dates: start: 20170210, end: 20170213
  18. AMBROXOL HYDROCHLORIDE [Concomitant]
     Active Substance: AMBROXOL HYDROCHLORIDE
     Dosage: PROMOTE RESPIRATION
     Dates: start: 20170210, end: 20170213
  19. DEOXYRIBONUCLEIC ACID SODIUM [Concomitant]
     Dosage: PROTECT LIVER
     Dates: start: 20170210, end: 20170213
  20. DEZOCINE [Concomitant]
     Active Substance: DEZOCINE
     Dosage: RELIEVE PAIN
     Dates: start: 20170210, end: 20170213
  21. POTASSIUM CHLORIDE [Concomitant]
     Active Substance: POTASSIUM CHLORIDE
     Dosage: POTASSIUM
     Dates: start: 20170211, end: 20170213
  22. TRAMADOL HYDROCHLORIDE [Concomitant]
     Active Substance: TRAMADOL HYDROCHLORIDE
     Dosage: RELIEVE PAIN
     Dates: start: 20170211, end: 20170213
  23. ACETAMINOPHEN [Concomitant]
     Active Substance: ACETAMINOPHEN
     Dosage: RELIEVE PAIN
     Dates: start: 20170211, end: 20170213
  24. INSULIN PORK\INSULIN PURIFIED PORK [Concomitant]
     Active Substance: INSULIN PORK\INSULIN PURIFIED PORK
     Dosage: LOWER BLOOD SUGAR
     Dates: start: 20170210, end: 20170210
  25. FLURBIPROFEN AXETIL [Concomitant]
     Active Substance: FLURBIPROFEN AXETIL
     Dosage: RELIEVE PAIN
     Dates: start: 20170216, end: 20170216
  26. VITAMIN B6 [Concomitant]
     Active Substance: PYRIDOXINE HYDROCHLORIDE
     Dosage: PREVENTION AND TREATMENT OF VITAMIN B6?DEFICIENCY
     Dates: start: 20170216, end: 20170216
  27. DEXTROSE [Concomitant]
     Active Substance: DEXTROSE
     Dosage: MAINTAIN ELECTROLYTE BALANCE
     Dates: start: 20170210, end: 20170210
  28. DEXTROSE [Concomitant]
     Active Substance: DEXTROSE
     Dosage: MAINTAIN ELECTROLYTE BALANCE
     Dates: start: 20170210, end: 20170213
  29. IPRATROPIUM BROMIDE [Concomitant]
     Active Substance: IPRATROPIUM BROMIDE
     Indication: Bronchiectasis
     Dates: start: 20170211, end: 20170213
  30. DOXOFYLLINE [Concomitant]
     Active Substance: DOXOFYLLINE
     Dosage: MAINTAIN ELECTROLYTE BALANCE
     Dates: start: 20170210, end: 20170213
  31. HUMAN FIBRIN ADHESIVE [Concomitant]
     Dates: start: 20170209, end: 20170209
  32. ROPIVACAINE MESYLATE [Concomitant]
     Dates: start: 20170209, end: 20170209
  33. FAT EMULSION NOS [Concomitant]
     Active Substance: EGG PHOSPHOLIPIDS\SAFFLOWER OIL\SOYBEAN OIL
     Dates: start: 20170210, end: 20170210

REACTIONS (1)
  - Lung cyst [Recovered/Resolved]

NARRATIVE: CASE EVENT DATE: 20170208
